FAERS Safety Report 9406316 (Version 2)
Quarter: 2013Q3

REPORT INFORMATION
  Report Type: Report from Study
  Country: MX (occurrence: MX)
  Receive Date: 20130717
  Receipt Date: 20130805
  Transmission Date: 20140515
  Serious: Yes (Other)
  Sender: FDA-Public Use
  Company Number: PHHY2012MX049583

PATIENT
  Age: 50 Year
  Sex: Female

DRUGS (3)
  1. TEGRETOL [Suspect]
     Indication: NEUROCYSTICERCOSIS
     Dosage: 2 DF PER DAY
     Route: 048
  2. FLUCONAZOLE [Concomitant]
     Indication: HYPERKERATOSIS
     Dosage: 1 DF PER WEEK
  3. TOPAMAX [Concomitant]
     Indication: CONVULSION
     Dosage: 1.5 DF,PER DAY
     Dates: start: 2009

REACTIONS (5)
  - Convulsion [Not Recovered/Not Resolved]
  - Hyperkeratosis [Not Recovered/Not Resolved]
  - Onychoclasis [Not Recovered/Not Resolved]
  - Feeling abnormal [Not Recovered/Not Resolved]
  - Somnolence [Not Recovered/Not Resolved]
